FAERS Safety Report 7213976-4 (Version None)
Quarter: 2011Q1

REPORT INFORMATION
  Report Type: 
  Country: None (occurrence: None)
  Receive Date: 20110106
  Receipt Date: 20101224
  Transmission Date: 20110831
  Serious: Yes (Hospitalization)
  Sender: FDA-Public Use
  Company Number: JP-AMGEN-JPNSP2010010758

PATIENT

DRUGS (12)
  1. AZULFIDINE EN 500 MG [Concomitant]
     Dosage: 500 MG, 2X/DAY
     Route: 048
     Dates: start: 20090623
  2. ONE-ALPHA [Concomitant]
     Dosage: 0.5 UG, 1X/DAY
     Route: 048
     Dates: start: 20080408
  3. PYDOXAL [Concomitant]
     Dosage: 30 MG, 2X/DAY
     Route: 048
     Dates: start: 20090924
  4. ISCOTIN [Concomitant]
     Dosage: 300 MG, 1X/DAY
     Route: 048
     Dates: start: 20090917
  5. MAG-LAX [Concomitant]
     Dosage: 1.2 G, 3X/DAY
     Route: 048
     Dates: start: 20100729
  6. GLAKAY [Concomitant]
     Dosage: 15 MG, 2X/DAY
     Route: 048
     Dates: start: 20100729
  7. CELECOXIB [Concomitant]
     Dosage: 100 MG, 1X/DAY
     Route: 048
     Dates: start: 20100916
  8. ENBREL [Suspect]
     Indication: RHEUMATOID ARTHRITIS
     Dosage: 25 MG, WEEKLY
     Route: 058
     Dates: start: 20101111, end: 20101206
  9. BLOPRESS [Concomitant]
     Dosage: 12 MG, 1X/DAY
     Route: 048
     Dates: start: 20040216
  10. PANTOSIN [Concomitant]
     Dosage: 1 G, 3X/DAY
     Route: 048
     Dates: start: 20091104
  11. PREDNISOLONE [Concomitant]
     Dosage: 6MG, WEEKLY
     Route: 048
  12. BREDININ [Concomitant]
     Dosage: 50 MG, 3X/DAY
     Route: 048
     Dates: start: 20090702

REACTIONS (1)
  - APPENDICITIS [None]
